FAERS Safety Report 5211953-6 (Version None)
Quarter: 2007Q1

REPORT INFORMATION
  Report Type: 
  Country: None (occurrence: None)
  Receive Date: 20070118
  Receipt Date: 20070112
  Transmission Date: 20070707
  Serious: Yes (Hospitalization)
  Sender: FDA-Public Use
  Company Number: DK-AVENTIS-200710325GDDC

PATIENT
  Sex: Male

DRUGS (1)
  1. MINIRIN [Suspect]
     Dosage: DOSE: UNK

REACTIONS (1)
  - CONVULSION [None]
